FAERS Safety Report 17191852 (Version 1)
Quarter: 2019Q4

REPORT INFORMATION
  Report Type: Report from Study
  Country: DE (occurrence: DE)
  Receive Date: 20191223
  Receipt Date: 20191223
  Transmission Date: 20200122
  Serious: Yes (Congenital Anomaly)
  Sender: FDA-Public Use
  Company Number: DE-TEVA-2019-DE-1156719

PATIENT
  Sex: Male

DRUGS (9)
  1. PARACETAMOL [Suspect]
     Active Substance: ACETAMINOPHEN
     Indication: PAIN
     Dosage: 1500 MILLIGRAM DAILY; BETWEEN GESTATIONAL WEEKS 17+1 AND 18+0
     Route: 064
  2. METOCLOPRAMIDE. [Suspect]
     Active Substance: METOCLOPRAMIDE
     Dosage: DURING THE SECOND AND THIRD TRIMESTER
     Route: 064
  3. AMPHOTERICIN B. [Suspect]
     Active Substance: AMPHOTERICIN B
     Dosage: DURING THE SECOND AND THIRD TRIMESTER
     Route: 064
  4. CEFUROXIME. [Suspect]
     Active Substance: CEFUROXIME
     Dosage: DURING THE SECOND AND THIRD TRIMESTER
     Route: 064
  5. PIPERACILLIN AND TAZOBACTAM [Suspect]
     Active Substance: PIPERACILLIN SODIUM\TAZOBACTAM SODIUM
     Dosage: DURING THE THIRD TRIMESTER
     Route: 064
  6. PARACETAMOL [Suspect]
     Active Substance: ACETAMINOPHEN
     Indication: PAIN
     Dosage: 2000 MILLIGRAM DAILY; BETWEEN GESTATIONAL WEEKS 27+4 AND 27+6
     Route: 064
  7. ACICLOVIR [Suspect]
     Active Substance: ACYCLOVIR
     Dosage: DURING THE SECOND TRIMESTER
     Route: 064
  8. DAUNORUBICIN [Suspect]
     Active Substance: DAUNORUBICIN
     Dosage: DURING THE SECOND AND THIRD TRIMESTER
     Route: 064
  9. CYTARABINE. [Suspect]
     Active Substance: CYTARABINE
     Dosage: DURING THE SECOND AND THIRD TRIMESTER
     Route: 064

REACTIONS (3)
  - Patent ductus arteriosus [Unknown]
  - Foetal exposure during pregnancy [Unknown]
  - Ventricular septal defect [Unknown]
